FAERS Safety Report 7008643-6 (Version None)
Quarter: 2010Q3

REPORT INFORMATION
  Report Type: 
  Country: None (occurrence: None)
  Receive Date: 20100922
  Receipt Date: 20100909
  Transmission Date: 20110219
  Serious: Yes (Other)
  Sender: FDA-Public Use
  Company Number: US-ELI_LILLY_AND_COMPANY-US201009004771

PATIENT
  Age: 55 Year
  Sex: Male

DRUGS (3)
  1. CYMBALTA [Suspect]
     Indication: DEPRESSION
     Dosage: 60 MG, DAILY (1/D)
  2. PROTON PUMP INHIBITORS [Concomitant]
  3. WELLBUTRIN [Concomitant]

REACTIONS (1)
  - VENTRICULAR EXTRASYSTOLES [None]
